FAERS Safety Report 24226606 (Version 4)
Quarter: 2025Q1

REPORT INFORMATION
  Report Type: Report from Study
  Country: US (occurrence: US)
  Receive Date: 20240820
  Receipt Date: 20250303
  Transmission Date: 20250409
  Serious: Yes (Other)
  Sender: TAKEDA
  Company Number: US-TAKEDA-2024TUS048643

PATIENT
  Sex: Female

DRUGS (4)
  1. TEDUGLUTIDE [Suspect]
     Active Substance: TEDUGLUTIDE
     Indication: Short-bowel syndrome
  2. TEDUGLUTIDE [Suspect]
     Active Substance: TEDUGLUTIDE
  3. TEDUGLUTIDE [Suspect]
     Active Substance: TEDUGLUTIDE
  4. TEDUGLUTIDE [Suspect]
     Active Substance: TEDUGLUTIDE

REACTIONS (10)
  - Diarrhoea [Unknown]
  - Muscle spasms [Unknown]
  - Nasal cavity cancer [Unknown]
  - Weight increased [Unknown]
  - Fatigue [Unknown]
  - Contusion [Unknown]
  - Injection site mass [Unknown]
  - Neck mass [Unknown]
  - Papule [Unknown]
  - Renal disorder [Unknown]
